FAERS Safety Report 25041778 (Version 3)
Quarter: 2025Q2

REPORT INFORMATION
  Report Type: Spontaneous
  Country: FR (occurrence: FR)
  Receive Date: 20250305
  Receipt Date: 20250404
  Transmission Date: 20250716
  Serious: No
  Sender: PFIZER
  Company Number: FR-PFIZER INC-202500044401

PATIENT
  Age: 10 Year
  Sex: Male

DRUGS (1)
  1. NGENLA [Suspect]
     Active Substance: SOMATROGON-GHLA
     Dosage: 24 MG, WEEKLY

REACTIONS (1)
  - Injection site pain [Unknown]
